FAERS Safety Report 13527024 (Version 1)
Quarter: 2017Q2

REPORT INFORMATION
  Report Type: Spontaneous
  Country: US (occurrence: US)
  Receive Date: 20170509
  Receipt Date: 20170509
  Transmission Date: 20170830
  Serious: Yes (Other)
  Sender: FDA-Public Use
  Company Number: None

PATIENT
  Age: 33 Year
  Sex: Female
  Weight: 111.68 kg

DRUGS (4)
  1. OXCARBAZEPINE. [Concomitant]
     Active Substance: OXCARBAZEPINE
  2. QUETIAPINE. [Concomitant]
     Active Substance: QUETIAPINE
  3. ZIPRASIDONE. [Concomitant]
     Active Substance: ZIPRASIDONE
  4. DEXTROAMPHET SACCHARAT, AMPHET ASPARTATE, DEXTROAMPHET SULFATE AND AMPHET SULFAT [Suspect]
     Active Substance: AMPHETAMINE ASPARTATE\AMPHETAMINE SULFATE\DEXTROAMPHETAMINE SACCHARATE\DEXTROAMPHETAMINE SULFATE
     Indication: ATTENTION DEFICIT/HYPERACTIVITY DISORDER
     Route: 048
     Dates: start: 20161109, end: 20161116

REACTIONS (7)
  - Dysphoria [None]
  - Attention deficit/hyperactivity disorder [None]
  - Anger [None]
  - Cognitive disorder [None]
  - Product substitution issue [None]
  - Aggression [None]
  - Condition aggravated [None]

NARRATIVE: CASE EVENT DATE: 20161116
